FAERS Safety Report 9213838 (Version 1)
Quarter: 2013Q2

REPORT INFORMATION
  Report Type: Spontaneous
  Country: IT (occurrence: IT)
  Receive Date: 20130405
  Receipt Date: 20130405
  Transmission Date: 20140414
  Serious: Yes (Hospitalization, Other)
  Sender: FDA-Public Use
  Company Number: IT-BRISTOL-MYERS SQUIBB COMPANY-18714287

PATIENT
  Age: 78 Year
  Sex: Male

DRUGS (8)
  1. COUMADIN TABS 5 MG [Suspect]
     Indication: ATRIAL FIBRILLATION
     Route: 048
     Dates: start: 20110401, end: 20120420
  2. SIMVASTATIN [Concomitant]
     Route: 048
  3. TRIATEC [Concomitant]
     Dosage: TABS
     Route: 048
  4. LUVION [Concomitant]
     Dosage: 50 MG TABLETS
     Route: 048
  5. CORDARONE [Concomitant]
     Dosage: 200 MG TABLETS
     Route: 048
  6. PANTORC [Concomitant]
     Indication: GASTRITIS EROSIVE
     Dosage: 20 MG CAPS
     Route: 048
  7. LASIX [Concomitant]
     Dosage: 25 MG TABLETS
     Route: 048
  8. CARDICOR [Concomitant]
     Dosage: 1.25 MG TABLETS
     Route: 048

REACTIONS (6)
  - Cerebral haemorrhage [Recovering/Resolving]
  - Aphasia [Recovering/Resolving]
  - Hemiplegia [Recovering/Resolving]
  - Renal failure chronic [Unknown]
  - Mitral valve incompetence [Unknown]
  - Bronchopneumonia [Unknown]
